FAERS Safety Report 22285047 (Version 1)
Quarter: 2023Q2

REPORT INFORMATION
  Report Type: Spontaneous
  Country: US (occurrence: US)
  Receive Date: 20230504
  Receipt Date: 20230504
  Transmission Date: 20230722
  Serious: No
  Sender: FDA-Public Use
  Company Number: US-Albireo AB-2023ALB000108

PATIENT
  Sex: Male
  Weight: 11.622 kg

DRUGS (1)
  1. BYLVAY [Suspect]
     Active Substance: ODEVIXIBAT
     Indication: Product used for unknown indication
     Route: 048

REACTIONS (2)
  - Irritability [Unknown]
  - Product dose omission issue [Unknown]
